FAERS Safety Report 10757734 (Version 1)
Quarter: 2015Q1

REPORT INFORMATION
  Report Type: Spontaneous
  Country: JP (occurrence: JP)
  Receive Date: 20150203
  Receipt Date: 20150203
  Transmission Date: 20150721
  Serious: Yes (Other)
  Sender: FDA-Public Use
  Company Number: JP-UCBSA-2015002725

PATIENT
  Age: 2 Year
  Sex: Male

DRUGS (4)
  1. MIYA-BM [Concomitant]
     Active Substance: CLOSTRIDIUM BUTYRICUM SPORES STRAIN M-55
     Indication: PROPHYLAXIS AGAINST DIARRHOEA
     Dosage: UNK
     Route: 048
  2. CEPHARANTHINE [Concomitant]
     Active Substance: CEPHARANTHINE
     Indication: OTITIS MEDIA
     Dosage: UNK
     Route: 048
  3. BIOFERMIN R [Concomitant]
     Active Substance: BACILLUS SUBTILIS\LACTOBACILLUS ACIDOPHILUS\STREPTOCOCCUS FAECAIS
     Indication: PROPHYLAXIS AGAINST DIARRHOEA
     Dosage: UNK
     Route: 048
  4. XYZAL [Suspect]
     Active Substance: LEVOCETIRIZINE DIHYDROCHLORIDE
     Indication: RHINITIS PERENNIAL
     Dosage: 2.5 ML, 2X/DAY (BID), SYRUP
     Route: 048
     Dates: start: 20140917, end: 20141030

REACTIONS (5)
  - Pharyngitis [Recovered/Resolved]
  - Croup infectious [Recovered/Resolved]
  - Status asthmaticus [Recovered/Resolved]
  - Otitis media acute [Recovered/Resolved]
  - Acute tonsillitis [Recovered/Resolved]

NARRATIVE: CASE EVENT DATE: 20140920
